FAERS Safety Report 14343631 (Version 2)
Quarter: 2018Q2

REPORT INFORMATION
  Report Type: Spontaneous
  Country: FR (occurrence: FR)
  Receive Date: 20180102
  Receipt Date: 20180501
  Transmission Date: 20180711
  Serious: Yes (Hospitalization)
  Sender: FDA-Public Use
  Company Number: FR-009507513-1712FRA013394

PATIENT
  Age: 86 Year
  Sex: Male

DRUGS (1)
  1. BCG LIVE [Suspect]
     Active Substance: BACILLUS CALMETTE-GUERIN SUBSTRAIN TICE LIVE ANTIGEN
     Indication: BLADDER CANCER
     Dosage: UNK, FORMULATION: UNKNOWN
     Route: 043

REACTIONS (2)
  - Endocarditis [Recovered/Resolved]
  - Disseminated Bacillus Calmette-Guerin infection [Recovered/Resolved]
